FAERS Safety Report 5960962-8 (Version None)
Quarter: 2008Q4

REPORT INFORMATION
  Report Type: 
  Country: None (occurrence: None)
  Receive Date: 20081121
  Receipt Date: 20081112
  Transmission Date: 20090506
  Serious: Yes (Other)
  Sender: FDA-Public Use
  Company Number: CA-BAXTER-2008BH011116

PATIENT
  Age: 57 Year
  Sex: Male
  Weight: 80 kg

DRUGS (2)
  1. GAMMAGARD LIQUID [Suspect]
     Indication: DIAPHRAGMATIC PARALYSIS
     Route: 042
     Dates: start: 20080821, end: 20080821
  2. GAMMAGARD LIQUID [Suspect]
     Indication: OFF LABEL USE
     Route: 042
     Dates: start: 20080821, end: 20080821

REACTIONS (6)
  - ANAPHYLACTIC SHOCK [None]
  - CHEST PAIN [None]
  - DYSPNOEA [None]
  - HYPERTENSION [None]
  - HYPOXIA [None]
  - TREMOR [None]
